FAERS Safety Report 7731553-3 (Version None)
Quarter: 2011Q3

REPORT INFORMATION
  Report Type: 
  Country: None (occurrence: None)
  Receive Date: 20110906
  Receipt Date: 20110808
  Transmission Date: 20111222
  Serious: No
  Sender: FDA-Public Use
  Company Number: US-BAYER-2011-072080

PATIENT
  Age: 86 Year
  Sex: Male
  Weight: 180 kg

DRUGS (5)
  1. FINASTERIDE [Concomitant]
  2. DOXAZOSIN MESYLATE [Concomitant]
  3. ACETYLSALICYLIC ACID SRT [Concomitant]
  4. LOSARTAN [Concomitant]
  5. DOMEBORO [Suspect]
     Indication: ACTINIC KERATOSIS
     Dosage: UNK UNK, TID
     Route: 061

REACTIONS (1)
  - SKIN DISCOLOURATION [None]
